FAERS Safety Report 10024676 (Version 1)
Quarter: 2014Q1

REPORT INFORMATION
  Report Type: Spontaneous
  Country: IT (occurrence: None)
  Receive Date: 20140205
  Receipt Date: 20140205
  Transmission Date: 20141002
  Serious: Yes (Hospitalization)
  Sender: FDA-Public Use
  Company Number: 2014-000193

PATIENT
  Age: 77 Year
  Sex: Male

DRUGS (10)
  1. SARAFEM [Suspect]
     Indication: ANXIETY
     Route: 048
  2. ATORVASTATIN CALCIUM [Suspect]
     Indication: DEPRESSION
     Route: 048
  3. CYCLOSPORINE [Suspect]
     Indication: DEPRESSION
     Route: 048
  4. FLANTADIN [Suspect]
     Indication: ARTHRALGIA
     Route: 048
     Dates: start: 20131210, end: 20131218
  5. FLUOXETINE HYDROCHLORIDE [Suspect]
     Indication: DEPRESSION
     Route: 048
  6. AMRIX [Suspect]
     Indication: DEPRESSION
     Route: 048
  7. ACETYLSALICYLIC ACID (ACETYLSALICYLIC ACID) [Concomitant]
  8. OLMESARTAN MEDOXOMIL (OLMESARTAN MEDOXOMIL) [Concomitant]
  9. CILOSTAZOL (CILOSTAZOL) [Concomitant]
  10. ATENOLOL (ATENOLOL) [Concomitant]

REACTIONS (4)
  - Renal failure acute [None]
  - Chorea [None]
  - Rhabdomyolysis [None]
  - Drug interaction [None]
